FAERS Safety Report 7893186-8 (Version None)
Quarter: 2011Q4

REPORT INFORMATION
  Report Type: 
  Country: None (occurrence: None)
  Receive Date: 20111104
  Receipt Date: 20111027
  Transmission Date: 20120403
  Serious: Yes (Other)
  Sender: FDA-Public Use
  Company Number: PHHY2011BR95353

PATIENT
  Sex: Female

DRUGS (3)
  1. TEGRETOL [Suspect]
     Dosage: UNK UKN, UNK
     Dates: start: 19750101
  2. TEGRETOL-XR [Suspect]
     Dosage: 200 MG, UNK
  3. CONDROFLEX [Concomitant]
     Dosage: UNK UKN, UNK

REACTIONS (2)
  - OSTEOPOROSIS [None]
  - DIABETES MELLITUS [None]
